FAERS Safety Report 8375993 (Version 2)
Quarter: 2013Q1

REPORT INFORMATION
  Report Type: Report from Study
  Country: US (occurrence: US)
  Receive Date: 20120129
  Receipt Date: 20130129
  Transmission Date: 20140127
  Serious: No
  Sender: FDA-Public Use
  Company Number: US-ABBOTT-11P-163-0883784-00

PATIENT
  Sex: Female

DRUGS (1)
  1. HUMIRA 40 MG/0.8 ML PEN [Suspect]
     Indication: RHEUMATOID ARTHRITIS
     Route: 058
     Dates: start: 201111, end: 201201

REACTIONS (4)
  - Sinusitis [Recovering/Resolving]
  - Sinusitis [Recovering/Resolving]
  - Productive cough [Unknown]
  - Paranasal sinus hypersecretion [Unknown]
